FAERS Safety Report 12551802 (Version 2)
Quarter: 2016Q3

REPORT INFORMATION
  Report Type: Spontaneous
  Country: US (occurrence: US)
  Receive Date: 20160713
  Receipt Date: 20160906
  Transmission Date: 20161109
  Serious: No
  Sender: FDA-Public Use
  Company Number: US-009507513-1606USA011249

PATIENT
  Sex: Female

DRUGS (1)
  1. NEXPLANON [Suspect]
     Active Substance: ETONOGESTREL
     Dosage: ONE IMPLANT
     Route: 059
     Dates: start: 20150311

REACTIONS (5)
  - Device breakage [Recovered/Resolved]
  - Headache [Unknown]
  - Poor quality sleep [Unknown]
  - Weight increased [Unknown]
  - Mood swings [Unknown]

NARRATIVE: CASE EVENT DATE: 201506
